FAERS Safety Report 11097860 (Version 5)
Quarter: 2019Q1

REPORT INFORMATION
  Report Type: Spontaneous
  Country: US (occurrence: US)
  Receive Date: 20150507
  Receipt Date: 20190103
  Transmission Date: 20190417
  Serious: Yes (Other)
  Sender: FDA-Public Use
  Company Number: US-PFIZER INC-2015151878

PATIENT
  Age: 53 Year
  Sex: Female
  Weight: 91 kg

DRUGS (34)
  1. CELEBREX [Suspect]
     Active Substance: CELECOXIB
     Indication: ARTHRITIS
     Dosage: 200 MG, 2X/DAY
     Route: 048
     Dates: start: 200306
  2. CELEBREX [Suspect]
     Active Substance: CELECOXIB
     Indication: FIBROMYALGIA
     Dosage: 200 MG, 2X/DAY
     Route: 048
  3. LYRICA [Concomitant]
     Active Substance: PREGABALIN
     Indication: FIBROMYALGIA
     Dosage: 100 MG TWICE A DAY AND 150MG ONCE A DAY, 3X/DAY
  4. COLACE [Concomitant]
     Active Substance: DOCUSATE SODIUM
     Dosage: 100 MG, TWO TIMES A DAY
     Route: 048
  5. VITAMIN C [Concomitant]
     Active Substance: ASCORBIC ACID
     Dosage: 50 MG, ONCE A DAY
     Route: 048
  6. TESSALON [Concomitant]
     Active Substance: BENZONATATE
     Dosage: 200 MG, AS NEEDED (PRN)
     Route: 048
  7. METOPROLOL TARTRATE. [Concomitant]
     Active Substance: METOPROLOL TARTRATE
     Dosage: 25 MG, ONCE DAILY
     Route: 048
  8. CHANTIX [Concomitant]
     Active Substance: VARENICLINE TARTRATE
     Dosage: 1 MG, 2X/DAY
     Route: 048
  9. FLEXERIL [Concomitant]
     Active Substance: CYCLOBENZAPRINE HYDROCHLORIDE
     Indication: MUSCLE SPASMS
     Dosage: 10 MG, ONCE DAILY AS NEEDED
  10. CYCLOBENZAPRINE. [Concomitant]
     Active Substance: CYCLOBENZAPRINE
     Dosage: 10 MG, ONCE DAILY AS NEEDED
  11. LASIX [Concomitant]
     Active Substance: FUROSEMIDE
     Dosage: 40 MG, ONCE A DAY
     Route: 048
  12. VITAMIN E [Concomitant]
     Active Substance: .ALPHA.-TOCOPHEROL
     Dosage: 400 IU, ONCE A DAY
     Route: 048
  13. ESCITALOPRAM OXALATE. [Concomitant]
     Active Substance: ESCITALOPRAM OXALATE
     Dosage: 20 MG, ONCE  A DAY
     Route: 048
  14. LYRICA [Concomitant]
     Active Substance: PREGABALIN
     Indication: PAIN
  15. GLUCOSAMINE CHONDROITIN MSM [Concomitant]
     Dosage: UNK
  16. ALBUTEROL SULFATE. [Concomitant]
     Active Substance: ALBUTEROL SULFATE
     Dosage: 4 MG, ONCE A DAY
     Route: 048
  17. POTASSIUM CHLORIDE. [Concomitant]
     Active Substance: POTASSIUM CHLORIDE
     Dosage: 10 MEQ, AS NEEDED (PRN)
     Route: 048
  18. LEXAPRO [Concomitant]
     Active Substance: ESCITALOPRAM OXALATE
     Dosage: 30 MG, DAILY
  19. GLUCOSAMINE [Concomitant]
     Active Substance: GLUCOSAMINE
     Dosage: 500 MG, ONCE A DAY
     Route: 048
  20. LYRICA [Concomitant]
     Active Substance: PREGABALIN
     Indication: NEUROPATHY PERIPHERAL
     Dosage: 200 MG, THREE TIMES A DAY
     Route: 048
  21. PROMETHAZINE [Concomitant]
     Active Substance: PROMETHAZINE\PROMETHAZINE HYDROCHLORIDE
     Dosage: 25 MG, AS NEEDED, (PRN)
     Route: 048
  22. SYSTANE (HYPROMELLOSE 2910 (4000 MPA.S)) [Concomitant]
     Active Substance: HYPROMELLOSE 2910 (4000 MPA.S)
     Dosage: 1 DROP (GTT) IN EACH EYE, AS NEEDED
  23. CYCLOBENZAPRINE. [Concomitant]
     Active Substance: CYCLOBENZAPRINE
     Indication: MUSCLE SPASMS
     Dosage: 10 MG, TWICE A DAY
  24. MAGNESIUM OXIDE. [Concomitant]
     Active Substance: MAGNESIUM OXIDE
     Dosage: 400 MG, ONCE A DAY
     Route: 048
  25. SIMVASTATIN. [Concomitant]
     Active Substance: SIMVASTATIN
     Dosage: 40 MG, ONCE A DAY AT BEDTIME
     Route: 048
  26. CELEBREX [Suspect]
     Active Substance: CELECOXIB
     Indication: PAIN
  27. ALBUTEROL. [Concomitant]
     Active Substance: ALBUTEROL
     Dosage: 3 ML, INHALED EVERY 6 HOURS [2.5 MG/3 ML (0.083%)]
     Route: 055
  28. IPRATROPIUM [Concomitant]
     Active Substance: IPRATROPIUM
     Dosage: 2.5 ML, THRICE A DAY (TID)
     Route: 055
  29. ESCITALOPRAM [Concomitant]
     Active Substance: ESCITALOPRAM OXALATE
     Dosage: 30 MG, DAILY
  30. CALCIUM 600 + D [Concomitant]
     Active Substance: CALCIUM\VITAMIN D
     Dosage: 1 DF, TWO TIMES A DAY
     Route: 048
  31. PERCOCET [Concomitant]
     Active Substance: ACETAMINOPHEN\OXYCODONE HYDROCHLORIDE
     Indication: PAIN
     Dosage: 1 DF,EVERY 6 HOURS AS NEEDED
     Route: 048
  32. VESICARE [Concomitant]
     Active Substance: SOLIFENACIN SUCCINATE
     Dosage: 10 MG, ONCE  A DAY
     Route: 048
  33. METOPROLOL TARTRATE. [Concomitant]
     Active Substance: METOPROLOL TARTRATE
     Dosage: 12.5 MG, DAILY (1/2 TAB)
  34. FLECAINIDE [Concomitant]
     Active Substance: FLECAINIDE
     Dosage: 75 MG, EVERY 12 HOURS
     Route: 048

REACTIONS (2)
  - Drug ineffective [Unknown]
  - Osteomyelitis [Unknown]
